FAERS Safety Report 16812985 (Version 1)
Quarter: 2019Q3

REPORT INFORMATION
  Report Type: Other
  Country: US (occurrence: US)
  Receive Date: 20190916
  Receipt Date: 20190916
  Transmission Date: 20191005
  Serious: No
  Sender: FDA-Public Use
  Company Number: US-LEADIANT BIOSCIENCES INC-2018STPI000636

PATIENT
  Age: 13 Year
  Sex: Male

DRUGS (8)
  1. PEPCID                             /00305201/ [Concomitant]
     Active Substance: ALUMINUM HYDROXIDE\MAGNESIUM CARBONATE
  2. GLEOSTINE [Concomitant]
     Active Substance: LOMUSTINE
  3. CLARITIN [Concomitant]
     Active Substance: LORATADINE
  4. MATULANE [Suspect]
     Active Substance: PROCARBAZINE HYDROCHLORIDE
     Indication: BRAIN NEOPLASM MALIGNANT
     Dosage: 50 MG AT 6 AM AND 6 PM AND 100 MG AT 12N AND 12 AM
     Dates: start: 20171204
  5. CLINDAMYCIN. [Concomitant]
     Active Substance: CLINDAMYCIN
  6. ZOFRAN [Concomitant]
     Active Substance: ONDANSETRON HYDROCHLORIDE
  7. VINCRISTINE [Concomitant]
     Active Substance: VINCRISTINE
  8. TABLOID [Concomitant]
     Active Substance: THIOGUANINE

REACTIONS (2)
  - Nausea [Not Recovered/Not Resolved]
  - Fatigue [Not Recovered/Not Resolved]

NARRATIVE: CASE EVENT DATE: 201809
